FAERS Safety Report 7562256-6 (Version None)
Quarter: 2011Q2

REPORT INFORMATION
  Report Type: 
  Country: None (occurrence: None)
  Receive Date: 20110614
  Receipt Date: 20110606
  Transmission Date: 20111010
  Serious: Yes (Other)
  Sender: FDA-Public Use
  Company Number: 2011SP025948

PATIENT
  Age: 46 Year
  Sex: Male
  Weight: 79.6 kg

DRUGS (4)
  1. GRANISETRON [Concomitant]
  2. LEVETIRACETAM [Concomitant]
  3. TEMOZOLOMIDE [Suspect]
     Indication: GLIOMA
     Dosage: 160 MG   430 MG
     Dates: start: 20110311
  4. TEMOZOLOMIDE [Suspect]
     Indication: GLIOMA
     Dosage: 160 MG   430 MG
     Dates: start: 20101223, end: 20110209

REACTIONS (2)
  - THROMBOCYTOPENIA [None]
  - COLD AGGLUTININS POSITIVE [None]
